FAERS Safety Report 9525595 (Version 1)
Quarter: 2013Q3

REPORT INFORMATION
  Report Type: Report from Study
  Country: FR (occurrence: FR)
  Receive Date: 20130915
  Receipt Date: 20130915
  Transmission Date: 20140515
  Serious: Yes (Other)
  Sender: FDA-Public Use
  Company Number: PHHY2013FR099131

PATIENT
  Sex: Female

DRUGS (2)
  1. STI571 [Suspect]
     Dosage: 400 MG, PER DAY
     Dates: start: 20100719
  2. SPRYCEL//DASATINIB [Suspect]
     Dosage: 100 MG, PER DAY
     Dates: start: 20100719

REACTIONS (6)
  - Gastrointestinal toxicity [Unknown]
  - Muscle spasms [Unknown]
  - Anal fissure [Unknown]
  - Gastrointestinal disorder [Unknown]
  - Nausea [Unknown]
  - Vomiting [Unknown]
